FAERS Safety Report 9646452 (Version 2)
Quarter: 2017Q3

REPORT INFORMATION
  Report Type: Spontaneous
  Country: IT (occurrence: IT)
  Receive Date: 20131025
  Receipt Date: 20170719
  Transmission Date: 20171128
  Serious: Yes (Death, Other)
  Sender: FDA-Public Use
  Company Number: PHHY2013IT117195

PATIENT
  Age: 40 Year
  Sex: Male

DRUGS (3)
  1. LACTULOSE. [Suspect]
     Active Substance: LACTULOSE
     Indication: LAXATIVE SUPPORTIVE CARE
     Route: 065
  2. QUETIAPINE. [Suspect]
     Active Substance: QUETIAPINE
     Indication: PSYCHOTIC DISORDER
     Dosage: 200MG TWICE DAILY AND 300MG IN THE EVENING
     Route: 065
  3. CLOZAPINE. [Suspect]
     Active Substance: CLOZAPINE
     Indication: PSYCHOTIC DISORDER
     Dosage: 100MG/ML 15 DROPS IN THE EVENING
     Route: 065

REACTIONS (14)
  - Abdominal pain [Fatal]
  - Pulmonary oedema [Unknown]
  - Visceral congestion [Unknown]
  - Hepatic congestion [Unknown]
  - Faecaloma [Unknown]
  - Constipation [Unknown]
  - Sudden cardiac death [Fatal]
  - Ileus paralytic [Fatal]
  - Gastrointestinal hypomotility [Fatal]
  - Hepatic steatosis [Unknown]
  - Abdominal distension [Fatal]
  - Mucosal hyperaemia [Unknown]
  - Hepatomegaly [Unknown]
  - Drug ineffective [Unknown]
